FAERS Safety Report 6044102-5 (Version None)
Quarter: 2009Q1

REPORT INFORMATION
  Report Type: 
  Country: None (occurrence: None)
  Receive Date: 20090115
  Receipt Date: 20090115
  Transmission Date: 20090719
  Serious: No
  Sender: FDA-Public Use
  Company Number: None

PATIENT
  Age: 58 Year
  Sex: Male
  Weight: 77.1115 kg

DRUGS (1)
  1. BONIVA [Suspect]
     Indication: OSTEOPOROSIS
     Dosage: 1 MONTHLY PO
     Route: 048
     Dates: start: 20080401, end: 20081230

REACTIONS (5)
  - ASTHENIA [None]
  - BACK PAIN [None]
  - MUSCULAR WEAKNESS [None]
  - NECK PAIN [None]
  - PARAESTHESIA [None]
